FAERS Safety Report 8959161 (Version 1)
Quarter: 2012Q4

REPORT INFORMATION
  Report Type: 
  Country: GB (occurrence: GB)
  Receive Date: 20121212
  Receipt Date: 20121212
  Transmission Date: 20130627
  Serious: Yes (Other)
  Sender: FDA-Public Use
  Company Number: GB-009507513-1212GBR003888

PATIENT
  Age: 5 Year
  Sex: Male

DRUGS (4)
  1. SINGULAIR [Suspect]
     Indication: COUGH
     Dosage: 4 mg, qd
     Route: 048
     Dates: start: 20121101, end: 20121115
  2. SINGULAIR [Suspect]
     Indication: WHEEZING
  3. ERYTHROMYCIN [Concomitant]
     Indication: COUGH
     Dosage: 250 mg, q4h
     Route: 048
     Dates: start: 201207
  4. SALBUTAMOL [Concomitant]
     Indication: COUGH
     Dosage: UNK, prn
     Route: 055
     Dates: start: 201209, end: 201210

REACTIONS (2)
  - Constipation [Recovered/Resolved]
  - Abdominal pain [Recovered/Resolved]
